FAERS Safety Report 17315022 (Version 2)
Quarter: 2020Q1

REPORT INFORMATION
  Report Type: Report from Study
  Country: MX (occurrence: MX)
  Receive Date: 20200124
  Receipt Date: 20200303
  Transmission Date: 20200409
  Serious: Yes (Hospitalization, Other)
  Sender: FDA-Public Use
  Company Number: NVSC2020MX014058

PATIENT
  Sex: Male
  Weight: 73 kg

DRUGS (4)
  1. DIOVAN [Suspect]
     Active Substance: VALSARTAN
     Indication: HYPERTENSION
     Dosage: 2 DF, QD
     Route: 048
  2. MINIPRESS [Concomitant]
     Active Substance: PRAZOSIN HYDROCHLORIDE
     Indication: HYPERTENSION
     Dosage: 3 DF, QD
     Route: 048
  3. DIOVAN [Suspect]
     Active Substance: VALSARTAN
     Dosage: 1 DF, BID
     Route: 048
     Dates: start: 201912
  4. AMIODARONA [Concomitant]
     Active Substance: AMIODARONE
     Indication: ARRHYTHMIA
     Dosage: 1 DF, QD
     Route: 048

REACTIONS (6)
  - Product prescribing error [Unknown]
  - Blood pressure increased [Unknown]
  - Adrenal disorder [Not Recovered/Not Resolved]
  - Blood pressure abnormal [Unknown]
  - Embolism [Unknown]
  - Off label use [Unknown]
